FAERS Safety Report 10492724 (Version 2)
Quarter: 2014Q4

REPORT INFORMATION
  Report Type: Spontaneous
  Country: PT (occurrence: PT)
  Receive Date: 20141002
  Receipt Date: 20141016
  Transmission Date: 20150528
  Serious: Yes (Other)
  Sender: FDA-Public Use
  Company Number: PT-ACTAVIS-2014-20985

PATIENT
  Age: 33 Year
  Sex: Female
  Weight: 63 kg

DRUGS (4)
  1. DOCETAXEL ACTAVIS [Suspect]
     Active Substance: DOCETAXEL
     Indication: BREAST CANCER
     Dosage: 170 MG, 1/ THREE WEEKS
     Route: 042
     Dates: start: 20140904, end: 20140904
  2. DEXAMETASONA                       /00016001/ [Concomitant]
     Indication: PROPHYLAXIS OF NAUSEA AND VOMITING
     Dosage: 20 MG, DAILY; PR?-MEDICA??O [PREMEDICATION]
     Route: 042
     Dates: start: 20140904, end: 20140904
  3. PREDNISOLONA                       /00016201/ [Concomitant]
     Indication: ALLERGY PROPHYLAXIS
     Dosage: 40 MG, UNK; 40 MG, THREE TIMES ONCE TWO DAYS; PR?-MEDICA??O [PREMEDICATION]
     Route: 048
     Dates: start: 20140903, end: 20140904
  4. ONDANSETROM                        /00955301/ [Concomitant]
     Indication: PROPHYLAXIS OF NAUSEA AND VOMITING
     Dosage: 8 MG, DAILY; PR?-MEDICA??O [PREMEDICATION]
     Route: 042
     Dates: start: 20140904, end: 20140904

REACTIONS (4)
  - Anaphylactic reaction [Recovered/Resolved]
  - Dyspnoea [Recovered/Resolved]
  - Erythema [Recovered/Resolved]
  - Throat tightness [Recovered/Resolved]

NARRATIVE: CASE EVENT DATE: 20140904
